FAERS Safety Report 22196961 (Version 15)
Quarter: 2024Q3

REPORT INFORMATION
  Report Type: Report from Study
  Country: MX (occurrence: MX)
  Receive Date: 20230411
  Receipt Date: 20240812
  Transmission Date: 20241016
  Serious: Yes (Other)
  Sender: TAKEDA
  Company Number: MX-TAKEDA-2021TUS030843

PATIENT
  Age: 33 Year
  Sex: Female
  Weight: 55 kg

DRUGS (8)
  1. VELAGLUCERASE ALFA [Suspect]
     Active Substance: VELAGLUCERASE ALFA
     Indication: Gaucher^s disease type I
     Dosage: 5 DOSAGE FORM, Q2WEEKS
     Route: 042
     Dates: start: 20190901
  2. VELAGLUCERASE ALFA [Suspect]
     Active Substance: VELAGLUCERASE ALFA
     Dosage: UNK
     Route: 042
     Dates: start: 201909
  3. VELAGLUCERASE ALFA [Suspect]
     Active Substance: VELAGLUCERASE ALFA
     Dosage: UNK UNK, Q2WEEKS
     Route: 042
     Dates: start: 20200904
  4. VELAGLUCERASE ALFA [Suspect]
     Active Substance: VELAGLUCERASE ALFA
     Dosage: 7 DOSAGE FORM, Q2WEEKS
     Route: 042
     Dates: start: 20200920
  5. VELAGLUCERASE ALFA [Suspect]
     Active Substance: VELAGLUCERASE ALFA
     Dosage: 5 DOSAGE FORM, Q2WEEKS
     Route: 042
  6. VELAGLUCERASE ALFA [Suspect]
     Active Substance: VELAGLUCERASE ALFA
     Dosage: 400 INTERNATIONAL UNIT
     Route: 042
  7. ACETAMINOPHEN [Concomitant]
     Active Substance: ACETAMINOPHEN
     Indication: Premedication
     Dosage: 650 MILLIGRAM
     Route: 065
  8. ACETAMINOPHEN [Concomitant]
     Active Substance: ACETAMINOPHEN
     Dosage: 1 GRAM
     Route: 065

REACTIONS (20)
  - Abortion [Recovered/Resolved]
  - Insomnia [Unknown]
  - Menstruation delayed [Unknown]
  - Breast feeding [Unknown]
  - COVID-19 [Not Recovered/Not Resolved]
  - Dysmenorrhoea [Not Recovered/Not Resolved]
  - Blood pressure increased [Recovered/Resolved]
  - Diarrhoea [Not Recovered/Not Resolved]
  - Weight decreased [Unknown]
  - Treatment noncompliance [Not Recovered/Not Resolved]
  - Pregnancy [Recovered/Resolved]
  - Product availability issue [Not Recovered/Not Resolved]
  - Product use issue [Not Recovered/Not Resolved]
  - Product prescribing error [Not Recovered/Not Resolved]
  - Incorrect dose administered [Unknown]
  - Product dose omission issue [Not Recovered/Not Resolved]
  - Headache [Unknown]
  - Nausea [Recovered/Resolved]
  - Bone pain [Recovered/Resolved]
  - Fatigue [Recovering/Resolving]

NARRATIVE: CASE EVENT DATE: 20210507
